FAERS Safety Report 13993781 (Version 1)
Quarter: 2017Q3

REPORT INFORMATION
  Report Type: Spontaneous
  Country: IE (occurrence: IE)
  Receive Date: 20170920
  Receipt Date: 20170920
  Transmission Date: 20171128
  Serious: No
  Sender: FDA-Public Use
  Company Number: IE-BIOGEN-2017BV000279

PATIENT
  Age: 9 Day
  Sex: Male

DRUGS (2)
  1. ALPROLIX [Suspect]
     Active Substance: EFTRENONACOG ALFA
     Indication: PROPHYLAXIS
     Route: 065
  2. ALPROLIX [Suspect]
     Active Substance: EFTRENONACOG ALFA
     Indication: FACTOR IX DEFICIENCY
     Dosage: BOLUS INJECTIONS, THEN ALTERNATE DAYS DURING THE PERIOPERATIVE PERIOD
     Route: 065
     Dates: start: 201704

REACTIONS (3)
  - Tachycardia [Unknown]
  - Off label use [Unknown]
  - Crying [Unknown]
